FAERS Safety Report 11238333 (Version 2)
Quarter: 2015Q3

REPORT INFORMATION
  Report Type: Spontaneous
  Country: US (occurrence: US)
  Receive Date: 20150704
  Receipt Date: 20150707
  Transmission Date: 20151125
  Serious: No
  Sender: FDA-Public Use
  Company Number: US-009507513-1506USA008912

PATIENT
  Age: 68 Year
  Sex: Male

DRUGS (9)
  1. ZOCOR [Concomitant]
     Active Substance: SIMVASTATIN
     Route: 048
  2. TICE BCG [Suspect]
     Active Substance: BACILLUS CALMETTE-GUERIN SUBSTRAIN TICE LIVE ANTIGEN
     Dosage: DOSAGE UNKNOWN
  3. AVAPRO [Concomitant]
     Active Substance: IRBESARTAN
  4. TICE BCG [Suspect]
     Active Substance: BACILLUS CALMETTE-GUERIN SUBSTRAIN TICE LIVE ANTIGEN
     Dosage: 1 VIAL, QW
     Route: 043
     Dates: start: 20140916, end: 20141009
  5. CLONAZEPAM. [Concomitant]
     Active Substance: CLONAZEPAM
  6. TOPAMAX [Concomitant]
     Active Substance: TOPIRAMATE
  7. TICE BCG [Suspect]
     Active Substance: BACILLUS CALMETTE-GUERIN SUBSTRAIN TICE LIVE ANTIGEN
     Indication: BLADDER CANCER STAGE 0, WITH CANCER IN SITU
     Dosage: 1 VIAL, QW
     Route: 043
     Dates: start: 20150601
  8. TICE BCG [Suspect]
     Active Substance: BACILLUS CALMETTE-GUERIN SUBSTRAIN TICE LIVE ANTIGEN
     Dosage: 1 VIAL, QW
     Route: 043
     Dates: start: 201406, end: 2014
  9. SODIUM CHLORIDE. [Suspect]
     Active Substance: SODIUM CHLORIDE

REACTIONS (5)
  - Adverse event [Unknown]
  - Pyrexia [Recovered/Resolved]
  - Meniere^s disease [Recovered/Resolved]
  - Drug dose omission [Unknown]
  - Product preparation error [Unknown]

NARRATIVE: CASE EVENT DATE: 20150601
